FAERS Safety Report 7580793-5 (Version None)
Quarter: 2011Q2

REPORT INFORMATION
  Report Type: 
  Country: None (occurrence: None)
  Receive Date: 20110629
  Receipt Date: 20110624
  Transmission Date: 20111010
  Serious: Yes (Other)
  Sender: FDA-Public Use
  Company Number: JP-PFIZER INC-2011136050

PATIENT
  Age: 61 Year
  Sex: Female

DRUGS (2)
  1. NORVASC [Suspect]
     Indication: HYPERTENSION
     Dosage: 5 MG, DAILY
     Route: 048
     Dates: end: 20110621
  2. LIPITOR [Suspect]
     Indication: HYPERLIPIDAEMIA
     Dosage: 10 MG, DAILY
     Dates: start: 20030101, end: 20110621

REACTIONS (2)
  - PLATELET COUNT DECREASED [None]
  - GINGIVAL BLEEDING [None]
